FAERS Safety Report 4811692-7 (Version None)
Quarter: 2005Q4

REPORT INFORMATION
  Report Type: 
  Country: None (occurrence: None)
  Receive Date: 20051025
  Receipt Date: 20051004
  Transmission Date: 20060501
  Serious: Yes (Hospitalization)
  Sender: FDA-Public Use
  Company Number: 2005P1000469

PATIENT
  Age: 46 Year
  Sex: Male
  Weight: 95.3 kg

DRUGS (10)
  1. RETEPLASE (RETEPLASE) [Suspect]
     Indication: ACUTE MYOCARDIAL INFARCTION
     Dosage: IV
     Route: 042
     Dates: start: 20050913, end: 20050913
  2. ABCIXIMAB (ABCIXIMAB) [Suspect]
     Indication: ACUTE MYOCARDIAL INFARCTION
     Dosage: IV
     Route: 042
     Dates: start: 20050913
  3. ASPIRIN [Concomitant]
  4. CLOPIDOGREL BISULFATE [Concomitant]
  5. PERINDOPRIL [Concomitant]
  6. ATORVASTATIN CALCIUM [Concomitant]
  7. PROTIUM [Concomitant]
  8. OMACOR [Concomitant]
  9. GLYCERYL TRINITRATE [Concomitant]
  10. BISOPROLOL [Concomitant]

REACTIONS (5)
  - CHEST DISCOMFORT [None]
  - CHEST PAIN [None]
  - CONSTIPATION [None]
  - ERUCTATION [None]
  - UNEVALUABLE EVENT [None]
